FAERS Safety Report 12511241 (Version 4)
Quarter: 2016Q3

REPORT INFORMATION
  Report Type: Report from Study
  Country: ZA (occurrence: ZA)
  Receive Date: 20160629
  Receipt Date: 20160729
  Transmission Date: 20161109
  Serious: Yes (Hospitalization)
  Sender: FDA-Public Use
  Company Number: ZA-ABBVIE-16K-143-1658549-00

PATIENT
  Age: 55 Year
  Sex: Female

DRUGS (1)
  1. HUMIRA [Suspect]
     Active Substance: ADALIMUMAB
     Indication: CROHN^S DISEASE
     Route: 058
     Dates: start: 2015, end: 201606

REACTIONS (3)
  - Nephrolithiasis [Unknown]
  - Infection [Unknown]
  - Renal colic [Not Recovered/Not Resolved]

NARRATIVE: CASE EVENT DATE: 20160619
